FAERS Safety Report 9285896 (Version 3)
Quarter: 2014Q3

REPORT INFORMATION
  Report Type: Spontaneous
  Country: SE (occurrence: None)
  Receive Date: 20130507
  Receipt Date: 20140708
  Transmission Date: 20150326
  Serious: Yes (Life-Threatening, Hospitalization)
  Sender: FDA-Public Use
  Company Number: SE-20130003

PATIENT
  Age: 59 Year
  Sex: Female

DRUGS (1)
  1. DOTAREM [Suspect]
     Active Substance: GADOTERATE MEGLUMINE
     Indication: NUCLEAR MAGNETIC RESONANCE IMAGING
     Dosage: 14 ML (14 ML, 1 IN 1 D, INTRAVENOUS (NOT OTHERWISE SPECIFIED)
     Route: 042
     Dates: start: 20100928, end: 20100928

REACTIONS (17)
  - Stress [None]
  - Asthenia [None]
  - Nausea [None]
  - Central nervous system lesion [None]
  - Abdominal discomfort [None]
  - Anoxia [None]
  - Memory impairment [None]
  - Visual impairment [None]
  - Disturbance in attention [None]
  - Pain [None]
  - Pollakiuria [None]
  - Hyperhidrosis [None]
  - Loss of consciousness [None]
  - Cerebrovascular accident [None]
  - Oedema [None]
  - Skin reaction [None]
  - Brain injury [None]

NARRATIVE: CASE EVENT DATE: 20100928
